FAERS Safety Report 7562621-7 (Version None)
Quarter: 2011Q2

REPORT INFORMATION
  Report Type: 
  Country: None (occurrence: None)
  Receive Date: 20110621
  Receipt Date: 20110621
  Transmission Date: 20111010
  Serious: Yes (Hospitalization)
  Sender: FDA-Public Use
  Company Number: None

PATIENT
  Age: 88 Year
  Sex: Male

DRUGS (13)
  1. WARFARIN SODIUM [Suspect]
     Indication: ATRIAL FIBRILLATION
     Dosage: 1.25 MG Q2DAYS PO
     Route: 048
  2. LASIX [Concomitant]
  3. PREDNISONE [Concomitant]
  4. CELEBREX [Concomitant]
  5. TOPROL-XL [Concomitant]
  6. FISH OIL [Concomitant]
  7. DIAZEPAM [Concomitant]
  8. WARFARIN SODIUM [Suspect]
     Indication: ATRIAL FIBRILLATION
     Dosage: 2.5MG Q2DAYS PO
     Route: 048
  9. DITROPAN [Concomitant]
  10. ASPIRIN [Suspect]
  11. VITAMIN-MINERAL COMPOUND TAB [Concomitant]
  12. PREVACID [Concomitant]
  13. DIGOXIN [Concomitant]

REACTIONS (2)
  - GINGIVAL BLEEDING [None]
  - MOUTH HAEMORRHAGE [None]
